FAERS Safety Report 17233488 (Version 1)
Quarter: 2020Q1

REPORT INFORMATION
  Report Type: Report from Study
  Country: US (occurrence: US)
  Receive Date: 20200104
  Receipt Date: 20200104
  Transmission Date: 20200409
  Serious: Yes (Other)
  Sender: FDA-Public Use
  Company Number: US-AUROBINDO-AUR-APL-2019-108089

PATIENT

DRUGS (2)
  1. CITALOPRAM [Suspect]
     Active Substance: CITALOPRAM HYDROBROMIDE
     Dosage: 10 MILLIGRAM, ONCE A DAY AS PER TOLERABILITY
     Route: 065
  2. CITALOPRAM [Suspect]
     Active Substance: CITALOPRAM HYDROBROMIDE
     Indication: SYNCOPE
     Dosage: 5 MILLIGRAM, ONCE A DAY (FOR 4 DAYS
     Route: 065

REACTIONS (3)
  - Libido decreased [Unknown]
  - Presyncope [Unknown]
  - Insomnia [Unknown]
